FAERS Safety Report 21953811 (Version 1)
Quarter: 2023Q1

REPORT INFORMATION
  Report Type: Report from Study
  Country: US (occurrence: US)
  Receive Date: 20230204
  Receipt Date: 20230204
  Transmission Date: 20230418
  Serious: No
  Sender: FDA-Public Use
  Company Number: US-BIOGEN-2022BI01136477

PATIENT
  Sex: Female

DRUGS (3)
  1. AMPYRA [Suspect]
     Active Substance: DALFAMPRIDINE
     Indication: Product used for unknown indication
     Dosage: UNK
     Route: 065
  2. TECFIDERA [Suspect]
     Active Substance: DIMETHYL FUMARATE
     Indication: Multiple sclerosis
     Dosage: 240 MILLIGRAM, BID (MAINTENANCE DOSE)
     Route: 050
  3. TECFIDERA [Suspect]
     Active Substance: DIMETHYL FUMARATE
     Dosage: 120 MILLIGRAM, BID (STARTING DOSE)
     Route: 050
     Dates: start: 20150128

REACTIONS (4)
  - Hot flush [Unknown]
  - Flushing [Unknown]
  - Burning sensation [Unknown]
  - Nausea [Unknown]
